FAERS Safety Report 10210541 (Version 1)
Quarter: 2014Q2

REPORT INFORMATION
  Report Type: Spontaneous
  Country: DK (occurrence: DK)
  Receive Date: 20140602
  Receipt Date: 20140602
  Transmission Date: 20141212
  Serious: Yes (Hospitalization)
  Sender: FDA-Public Use
  Company Number: DK-MYLANLABS-2014S1011794

PATIENT
  Age: 66 Year
  Sex: Male

DRUGS (3)
  1. METHOTREXATE [Suspect]
     Indication: PSORIATIC ARTHROPATHY
     Dosage: 15MG WEEKLY
     Route: 065
  2. PREDNISOLONE [Suspect]
     Indication: INFLAMMATORY BOWEL DISEASE
     Route: 065
  3. METHYLPREDNISOLONE [Suspect]
     Indication: INFLAMMATORY BOWEL DISEASE
     Route: 042

REACTIONS (4)
  - Amoebic colitis [Recovering/Resolving]
  - Amoebiasis [Recovering/Resolving]
  - Amoebic dysentery [Recovered/Resolved]
  - Necrotising colitis [Recovering/Resolving]
